FAERS Safety Report 11934310 (Version 3)
Quarter: 2016Q1

REPORT INFORMATION
  Report Type: Spontaneous
  Country: TR (occurrence: TR)
  Receive Date: 20160121
  Receipt Date: 20160205
  Transmission Date: 20160526
  Serious: Yes (Hospitalization, Other)
  Sender: FDA-Public Use
  Company Number: TR-BEH-2016057951

PATIENT
  Age: 78 Year
  Sex: Male
  Weight: 120 kg

DRUGS (5)
  1. VITAMINS WITH MINERALS [Concomitant]
     Active Substance: MINERALS\VITAMINS
  2. PRIVIGEN [Suspect]
     Active Substance: HUMAN IMMUNOGLOBULIN G
     Indication: CHRONIC INFLAMMATORY DEMYELINATING POLYRADICULONEUROPATHY
     Route: 042
     Dates: start: 20151223, end: 20151225
  3. PANTO [Concomitant]
     Active Substance: PANTOPRAZOLE SODIUM
  4. SANELOC [Concomitant]
     Route: 048
  5. AVODART [Concomitant]
     Active Substance: DUTASTERIDE

REACTIONS (2)
  - Respiratory distress [Not Recovered/Not Resolved]
  - Pulmonary embolism [Not Recovered/Not Resolved]

NARRATIVE: CASE EVENT DATE: 20151225
